FAERS Safety Report 8443445-5 (Version None)
Quarter: 2012Q2

REPORT INFORMATION
  Report Type: 
  Country: None (occurrence: None)
  Receive Date: 20120612
  Receipt Date: 20120612
  Transmission Date: 20120825
  Serious: No
  Sender: FDA-Public Use
  Company Number: None

PATIENT
  Sex: Male

DRUGS (1)
  1. PREZISTA DARUNAVIR CENTOCOR, INC. TIBOTEC THERAPEUTICS GENERIC [Suspect]
     Dosage: TABLET BY MOUTH
     Route: 048

REACTIONS (1)
  - DRUG DISPENSING ERROR [None]
